FAERS Safety Report 9261589 (Version 2)
Quarter: 2013Q4

REPORT INFORMATION
  Report Type: Report from Study
  Country: FR (occurrence: FR)
  Receive Date: 20130429
  Receipt Date: 20131224
  Transmission Date: 20140711
  Serious: Yes (Life-Threatening, Hospitalization)
  Sender: FDA-Public Use
  Company Number: FR-PFIZER INC-2013129226

PATIENT
  Age: 49 Year
  Sex: Female

DRUGS (11)
  1. ATGAM [Suspect]
     Indication: BONE MARROW FAILURE
     Dosage: 40 MG/KG, DAILY
     Route: 042
     Dates: start: 20121226, end: 20121229
  2. TAZOCILLINE [Suspect]
     Dosage: 16 G, 1X/DAY
     Route: 042
     Dates: start: 20121217, end: 20130114
  3. VANCOMYCIN HCL [Suspect]
     Indication: STAPHYLOCOCCAL BACTERAEMIA
     Dosage: 2 G, 1X/DAY
     Route: 042
     Dates: start: 20121220, end: 20130115
  4. NEORAL [Suspect]
     Indication: BONE MARROW FAILURE
     Dosage: 5 MG, 2X/DAY
     Route: 048
     Dates: start: 20121226
  5. NEORAL [Suspect]
     Dosage: 75 MG, DAILY
     Dates: end: 20130220
  6. RENITEC [Concomitant]
     Route: 048
  7. LEVOTHYROX [Concomitant]
     Route: 048
  8. VIREAD [Concomitant]
     Dosage: UNK
     Route: 048
     Dates: start: 20121220
  9. METHYLPREDNISOLONE [Concomitant]
     Indication: PREMEDICATION
  10. PARACETAMOL [Concomitant]
     Indication: PREMEDICATION
  11. POLARAMINE [Concomitant]
     Indication: PREMEDICATION

REACTIONS (3)
  - Drug reaction with eosinophilia and systemic symptoms [Recovered/Resolved]
  - Toxic skin eruption [Recovered/Resolved]
  - Abnormal behaviour [Recovered/Resolved]
